FAERS Safety Report 4295945-X (Version None)
Quarter: 2004Q1

REPORT INFORMATION
  Report Type: 
  Country: None (occurrence: None)
  Receive Date: 20040212
  Receipt Date: 20040202
  Transmission Date: 20041129
  Serious: Yes (Hospitalization)
  Sender: FDA-Public Use
  Company Number: 03P-087-0244412-00

PATIENT
  Age: 74 Year
  Sex: Female
  Weight: 60 kg

DRUGS (4)
  1. TRICOR [Suspect]
     Indication: HYPERLIPIDAEMIA
     Dosage: 150 MG, 2 IN 1 D; PER ORAL
     Route: 048
     Dates: start: 20031011, end: 20031112
  2. PRAVASTATIN SODIUM [Concomitant]
  3. BISOPROLOL [Concomitant]
  4. BENZAFIBRATE SR [Concomitant]

REACTIONS (6)
  - ARTERIOSCLEROSIS [None]
  - CHOLELITHIASIS [None]
  - HEPATIC STEATOSIS [None]
  - HEPATOMEGALY [None]
  - LIVER DISORDER [None]
  - MALAISE [None]
